FAERS Safety Report 6293364-8 (Version None)
Quarter: 2009Q3

REPORT INFORMATION
  Report Type: 
  Country: None (occurrence: None)
  Receive Date: 20090731
  Receipt Date: 20090724
  Transmission Date: 20100115
  Serious: Yes (Other)
  Sender: FDA-Public Use
  Company Number: JP-MERCK-0906USA03158

PATIENT
  Age: 85 Year
  Sex: Female

DRUGS (7)
  1. STROMECTOL [Suspect]
     Indication: ACARODERMATITIS
     Route: 048
     Dates: start: 20090528, end: 20090528
  2. EURAX [Concomitant]
     Indication: ACARODERMATITIS
     Route: 061
     Dates: start: 20090525, end: 20090602
  3. CELESTAMINE TAB [Concomitant]
     Indication: VIRAL INFECTION
     Route: 048
     Dates: start: 20090420
  4. MYSER [Concomitant]
     Indication: ECZEMA
     Route: 061
     Dates: start: 20090525, end: 20090602
  5. ALLELOCK [Concomitant]
     Indication: ACARODERMATITIS
     Route: 048
     Dates: start: 20090525, end: 20090602
  6. VITAMEDIN [Concomitant]
     Indication: VIRAL INFECTION
     Route: 048
     Dates: start: 20090420
  7. MUCOSTA [Concomitant]
     Indication: VIRAL INFECTION
     Route: 048
     Dates: start: 20090420

REACTIONS (2)
  - ERYTHEMA MULTIFORME [None]
  - HEPATIC FUNCTION ABNORMAL [None]
